FAERS Safety Report 7051364-4 (Version None)
Quarter: 2010Q4

REPORT INFORMATION
  Report Type: 
  Country: None (occurrence: None)
  Receive Date: 20101018
  Receipt Date: 20101018
  Transmission Date: 20110411
  Serious: Yes (Other)
  Sender: FDA-Public Use
  Company Number: None

PATIENT
  Age: 36 Year
  Sex: Female
  Weight: 58.9676 kg

DRUGS (1)
  1. ETODOLAC [Suspect]
     Indication: ARTHRALGIA
     Dosage: 400 MG 2X DAILY PILLS/ORAL
     Route: 048
     Dates: start: 20080101, end: 20100101

REACTIONS (5)
  - ABASIA [None]
  - ARTHRALGIA [None]
  - INFLAMMATION [None]
  - PAIN [None]
  - SYNOVIAL CYST [None]
